FAERS Safety Report 4672427-4 (Version None)
Quarter: 2005Q2

REPORT INFORMATION
  Report Type: 
  Country: None (occurrence: None)
  Receive Date: 20050520
  Receipt Date: 20050520
  Transmission Date: 20051028
  Serious: No
  Sender: FDA-Public Use
  Company Number: None

PATIENT
  Age: 19 Year
  Sex: Male
  Weight: 64.7 kg

DRUGS (2)
  1. ETOPOSIDE [Suspect]
     Indication: GERM CELL CANCER
     Dosage: 175 MG IV QD X 5 D
     Route: 042
  2. ETOPOSIDE [Suspect]
     Indication: METASTASIS
     Dosage: 175 MG IV QD X 5 D
     Route: 042

REACTIONS (4)
  - ANAPHYLACTIC REACTION [None]
  - DYSPNOEA [None]
  - INFUSION RELATED REACTION [None]
  - SKIN DISCOLOURATION [None]
